FAERS Safety Report 25835257 (Version 1)
Quarter: 2025Q3

REPORT INFORMATION
  Report Type: Spontaneous
  Country: CN (occurrence: CN)
  Receive Date: 20250923
  Receipt Date: 20250923
  Transmission Date: 20251021
  Serious: Yes (Life-Threatening, Other)
  Sender: CHEPLAPHARM
  Company Number: CN-Anlongtai-2025003

PATIENT
  Age: 54 Year
  Sex: Female
  Weight: 56 kg

DRUGS (13)
  1. CARBOPLATIN [Suspect]
     Active Substance: CARBOPLATIN
     Indication: Breast cancer stage III
     Dosage: IVGTT, D1?DAILY DOSE: 300 MILLIGRAM
     Route: 042
     Dates: start: 20220324, end: 20220324
  2. CARBOPLATIN [Suspect]
     Active Substance: CARBOPLATIN
     Indication: Breast cancer stage III
     Dosage: IVGTT, D8?DAILY DOSE: 200 MILLIGRAM
     Route: 042
     Dates: start: 20220331, end: 20220331
  3. CARBOPLATIN [Suspect]
     Active Substance: CARBOPLATIN
     Indication: Breast cancer stage III
     Dosage: IVGTT?DAILY DOSE: 200 MILLIGRAM
     Route: 042
     Dates: start: 20220511, end: 20220511
  4. GEMCITABINE [Suspect]
     Active Substance: GEMCITABINE
     Indication: Breast cancer stage III
     Dosage: IVGTT, D1?DAILY DOSE: 1400 MILLIGRAM
     Route: 042
     Dates: start: 20220324, end: 20220324
  5. GEMCITABINE [Suspect]
     Active Substance: GEMCITABINE
     Indication: Breast cancer stage III
     Dosage: IVGTT, D8?DAILY DOSE: 1400 MILLIGRAM
     Route: 042
     Dates: start: 20220331, end: 20220331
  6. GEMCITABINE [Suspect]
     Active Substance: GEMCITABINE
     Indication: Breast cancer stage III
     Dosage: IVGTT?DAILY DOSE: 1400 MILLIGRAM
     Route: 042
     Dates: start: 20220511, end: 20220511
  7. CAPECITABINE [Suspect]
     Active Substance: CAPECITABINE
     Indication: Breast cancer stage III
     Route: 048
     Dates: start: 20210526
  8. PEMBROLIZUMAB [Suspect]
     Active Substance: PEMBROLIZUMAB
     Indication: Breast cancer stage III
     Dosage: IVGTT, D1?DAILY DOSE: 200 MILLIGRAM
     Route: 042
     Dates: start: 20220324, end: 20220324
  9. PEMBROLIZUMAB [Suspect]
     Active Substance: PEMBROLIZUMAB
     Indication: Breast cancer stage III
     Dosage: IVGTT?DAILY DOSE: 200 MILLIGRAM
     Route: 042
     Dates: start: 20220511, end: 20220511
  10. CISPLATIN [Suspect]
     Active Substance: CISPLATIN
     Indication: Breast cancer stage III
     Dates: start: 20220303, end: 20220303
  11. CISPLATIN [Suspect]
     Active Substance: CISPLATIN
     Indication: Breast cancer stage III
     Dates: start: 20220304, end: 20220304
  12. CISPLATIN [Suspect]
     Active Substance: CISPLATIN
     Indication: Breast cancer stage III
     Dates: start: 20220305, end: 20220305
  13. DOCETAXEL [Suspect]
     Active Substance: DOCETAXEL
     Indication: Breast cancer stage III
     Dates: start: 20210311

REACTIONS (4)
  - Optic neuropathy [Unknown]
  - Optic neuritis [Recovering/Resolving]
  - Papilloedema [Unknown]
  - Off label use [Not Recovered/Not Resolved]

NARRATIVE: CASE EVENT DATE: 20220324
